FAERS Safety Report 7497528-7 (Version None)
Quarter: 2011Q2

REPORT INFORMATION
  Report Type: 
  Country: None (occurrence: None)
  Receive Date: 20110523
  Receipt Date: 20110510
  Transmission Date: 20111010
  Serious: Yes (Other)
  Sender: FDA-Public Use
  Company Number: PHHY2011US39934

PATIENT
  Sex: Female

DRUGS (2)
  1. AFINITOR [Suspect]
  2. TEGRETOL [Suspect]
     Indication: TRIGEMINAL NEURALGIA

REACTIONS (9)
  - BALANCE DISORDER [None]
  - DECREASED APPETITE [None]
  - BRAIN NEOPLASM [None]
  - FATIGUE [None]
  - VISUAL IMPAIRMENT [None]
  - VOMITING [None]
  - NAUSEA [None]
  - PRURITUS [None]
  - RASH [None]
